FAERS Safety Report 7244665-8 (Version None)
Quarter: 2011Q1

REPORT INFORMATION
  Report Type: 
  Country: None (occurrence: None)
  Receive Date: 20110125
  Receipt Date: 20101026
  Transmission Date: 20110831
  Serious: No
  Sender: FDA-Public Use
  Company Number: US-MYLANLABS-2010S1019888

PATIENT
  Age: 87 Year
  Sex: Male

DRUGS (3)
  1. ASPIRIN [Concomitant]
  2. PLAVIX [Concomitant]
  3. CLONIDINE [Suspect]
     Indication: BLOOD PRESSURE INCREASED
     Dosage: CHANGED QW
     Route: 062
     Dates: start: 20101023, end: 20101024

REACTIONS (2)
  - APPLICATION SITE DISCHARGE [None]
  - APPLICATION SITE ERYTHEMA [None]
